FAERS Safety Report 4991425-4 (Version None)
Quarter: 2006Q2

REPORT INFORMATION
  Report Type: 
  Country: None (occurrence: None)
  Receive Date: 20060502
  Receipt Date: 20060502
  Transmission Date: 20061013
  Serious: Yes (Hospitalization, Other)
  Sender: FDA-Public Use
  Company Number: None

PATIENT
  Sex: Female
  Weight: 53 kg

DRUGS (6)
  1. CYCLOPHOSPHAMIDE [Suspect]
     Indication: DIFFUSE LARGE B-CELL LYMPHOMA
     Dosage: 581 MG
     Dates: start: 20060415
  2. DOXORUBICIN HCL [Suspect]
     Dosage: 64 MG
     Dates: start: 20060414
  3. ETOPOSIDE [Suspect]
     Dosage: 312 MG
     Dates: start: 20060414
  4. G-CSF (FILGRASTIM, AMGEN) [Suspect]
     Dosage: 2650 MG
     Dates: start: 20060428
  5. PREDNISONE TAB [Suspect]
     Dosage: 450 MG
     Dates: start: 20060414
  6. VINCRISTINE SULFATE [Suspect]
     Dosage: 2.48 MG
     Dates: start: 20060414

REACTIONS (2)
  - FEBRILE NEUTROPENIA [None]
  - MUCOSAL INFLAMMATION [None]
